FAERS Safety Report 24112532 (Version 1)
Quarter: 2024Q3

REPORT INFORMATION
  Report Type: Spontaneous
  Country: JP (occurrence: None)
  Receive Date: 20240719
  Receipt Date: 20240719
  Transmission Date: 20241017
  Serious: Yes (Life-Threatening)
  Sender: ASTRAZENECA
  Company Number: 2024A163811

PATIENT
  Age: 66 Year
  Sex: Male

DRUGS (2)
  1. IMFINZI [Suspect]
     Active Substance: DURVALUMAB
     Indication: Non-small cell lung cancer
     Dosage: DOSE UNKNOWN
     Route: 041
     Dates: start: 20240626
  2. IMJUDO [Suspect]
     Active Substance: TREMELIMUMAB\TREMELIMUMAB-ACTL
     Indication: Non-small cell lung cancer
     Dosage: DOSE UNKNOWN
     Route: 041
     Dates: start: 20240626

REACTIONS (1)
  - Cytokine storm [Recovering/Resolving]

NARRATIVE: CASE EVENT DATE: 20240701
